FAERS Safety Report 4560878-8 (Version None)
Quarter: 2005Q1

REPORT INFORMATION
  Report Type: 
  Country: None (occurrence: None)
  Receive Date: 20050126
  Receipt Date: 20050118
  Transmission Date: 20050727
  Serious: Yes (Other)
  Sender: FDA-Public Use
  Company Number: US-JNJFOC-20050100310

PATIENT
  Sex: Female

DRUGS (8)
  1. TYLENOL (CAPLET) [Suspect]
  2. TYLENOL (CAPLET) [Suspect]
     Indication: ARTHRITIS
  3. LOTENSIN [Concomitant]
  4. SPIRONOLACTONE [Concomitant]
  5. OCUVITE [Concomitant]
  6. OCUVITE [Concomitant]
  7. OCUVITE [Concomitant]
  8. LIPITOR [Concomitant]

REACTIONS (6)
  - LOCALISED INFECTION [None]
  - OEDEMA PERIPHERAL [None]
  - OVERDOSE [None]
  - PRURITUS [None]
  - PRURITUS GENERALISED [None]
  - URTICARIA [None]
